FAERS Safety Report 24543811 (Version 2)
Quarter: 2024Q4

REPORT INFORMATION
  Report Type: Report from Study
  Country: ES (occurrence: ES)
  Receive Date: 20241024
  Receipt Date: 20241201
  Transmission Date: 20250115
  Serious: Yes (Hospitalization)
  Sender: JOHNSON AND JOHNSON
  Company Number: ES-SA-2024SA097794

PATIENT
  Age: 71 Year
  Sex: Male
  Weight: 76 kg

DRUGS (17)
  1. INVOKANA [Suspect]
     Active Substance: CANAGLIFLOZIN
     Indication: Product used for unknown indication
     Dosage: UNK
  2. INSULIN GLARGINE [Suspect]
     Active Substance: INSULIN GLARGINE
     Indication: Type 2 diabetes mellitus
     Dosage: 50 U, QD
     Dates: start: 202304
  3. INSULIN GLARGINE [Suspect]
     Active Substance: INSULIN GLARGINE
     Dosage: 58 U, QD
  4. INSULIN GLARGINE [Suspect]
     Active Substance: INSULIN GLARGINE
     Dosage: 64 U, QD
  5. INSULIN GLARGINE [Suspect]
     Active Substance: INSULIN GLARGINE
     Dosage: 66 U, QD
  6. INSULIN GLARGINE [Suspect]
     Active Substance: INSULIN GLARGINE
     Dosage: 68 U, QD
  7. INSULIN GLARGINE [Suspect]
     Active Substance: INSULIN GLARGINE
     Dosage: 70 U, QD
  8. INSULIN GLARGINE [Suspect]
     Active Substance: INSULIN GLARGINE
     Dosage: 68 U, QD
     Dates: start: 20240714
  9. INSULIN GLARGINE [Suspect]
     Active Substance: INSULIN GLARGINE
     Dosage: 70 U
  10. INSULIN GLARGINE [Suspect]
     Active Substance: INSULIN GLARGINE
     Dosage: 66 U, QD
  11. METFORMIN HYDROCHLORIDE [Concomitant]
     Active Substance: METFORMIN HYDROCHLORIDE
     Indication: Hyperglycaemia
     Dosage: UNK, TID; 1-1-1
  12. REPAGLINIDE [Concomitant]
     Active Substance: DULOXETINE HYDROCHLORIDE\REPAGLINIDE\TICAGRELOR
     Indication: Type 2 diabetes mellitus
     Dosage: 2 DF, TID; 2-2-2
     Dates: start: 1994
  13. NOVORAPID [Concomitant]
     Active Substance: INSULIN ASPART
     Indication: Type 2 diabetes mellitus
     Dosage: UNK, TID; 10 - 14 - 12U
     Dates: start: 20240314, end: 2024
  14. NOVORAPID [Concomitant]
     Active Substance: INSULIN ASPART
     Dosage: 10 UNITS, 12 UNITS AND 10 UNITS WITH MEALS
     Dates: start: 2024, end: 2024
  15. NOVORAPID [Concomitant]
     Active Substance: INSULIN ASPART
     Dosage: 10 - 14 - 12U
     Dates: start: 2024
  16. PRANDIN [Concomitant]
     Active Substance: REPAGLINIDE
     Indication: Type 2 diabetes mellitus
     Dosage: 2 DF, TID
     Dates: start: 1994
  17. METFORMIN [Concomitant]
     Active Substance: METFORMIN HYDROCHLORIDE
     Indication: Product used for unknown indication
     Dosage: QD; 0-0-1

REACTIONS (11)
  - Surgery [Recovered/Resolved]
  - Fatigue [Recovered/Resolved]
  - Dizziness [Recovered/Resolved]
  - Vertigo [Recovered/Resolved]
  - Somnolence [Recovered/Resolved]
  - Intentional product misuse [Unknown]
  - Blood glucose increased [Recovering/Resolving]
  - Headache [Recovering/Resolving]
  - Pollakiuria [Recovering/Resolving]
  - Hypoglycaemia [Recovered/Resolved]
  - Neck pain [Unknown]

NARRATIVE: CASE EVENT DATE: 20240101
